FAERS Safety Report 8106374 (Version 4)
Quarter: 2013Q3

REPORT INFORMATION
  Report Type: Spontaneous
  Country: US (occurrence: US)
  Receive Date: 20110825
  Receipt Date: 20130823
  Transmission Date: 20140515
  Serious: Yes (Other)
  Sender: FDA-Public Use
  Company Number: US-BAYER-2011-075234

PATIENT
  Age: 29 Year
  Sex: Female
  Weight: 61.22 kg

DRUGS (10)
  1. YASMIN [Suspect]
     Dosage: UNK
     Route: 048
     Dates: start: 2007, end: 2008
  2. YAZ [Suspect]
     Dosage: UNK
     Route: 048
     Dates: start: 2007, end: 2008
  3. OCELLA [Suspect]
     Dosage: UNK
     Dates: start: 2007, end: 2008
  4. HYDROCHLOROTHIAZIDE [Concomitant]
  5. TRIAMTERENE [Concomitant]
     Indication: HYPERTENSION
     Dosage: UNK
     Dates: start: 2007
  6. UNKNOWN [Concomitant]
  7. CELEBREX [Concomitant]
  8. COREG [Concomitant]
  9. DYAZIDE [Concomitant]
  10. PRILOSEC [Concomitant]

REACTIONS (3)
  - Cerebrovascular accident [None]
  - Injury [None]
  - Pain [None]
